FAERS Safety Report 20223270 (Version 4)
Quarter: 2022Q1

REPORT INFORMATION
  Report Type: Report from Study
  Country: US (occurrence: US)
  Receive Date: 20211223
  Receipt Date: 20220217
  Transmission Date: 20220423
  Serious: No
  Sender: FDA-Public Use
  Company Number: US-KYOWAKIRIN-2021BKK021212

PATIENT

DRUGS (2)
  1. CRYSVITA [Suspect]
     Active Substance: BUROSUMAB-TWZA
     Indication: Hereditary hypophosphataemic rickets
     Dosage: 90 MG, EVERY 28 DAYS
     Route: 058
     Dates: start: 20200313
  2. CRYSVITA [Suspect]
     Active Substance: BUROSUMAB-TWZA
     Dosage: 90 MG, EVERY 28 DAYS
     Route: 058

REACTIONS (8)
  - Urinary tract infection [Unknown]
  - Musculoskeletal stiffness [Unknown]
  - Cystitis [Unknown]
  - Fall [Unknown]
  - Sinusitis [Not Recovered/Not Resolved]
  - Arthralgia [Unknown]
  - Restless legs syndrome [Not Recovered/Not Resolved]
  - Back pain [Unknown]
